FAERS Safety Report 12499559 (Version 1)
Quarter: 2016Q2

REPORT INFORMATION
  Report Type: Spontaneous
  Country: FR (occurrence: FR)
  Receive Date: 20160627
  Receipt Date: 20160627
  Transmission Date: 20160815
  Serious: Yes (Life-Threatening, Hospitalization)
  Sender: FDA-Public Use
  Company Number: FR-PFIZER INC-2016316324

PATIENT
  Age: 56 Year
  Sex: Male

DRUGS (6)
  1. SOLIAN [Suspect]
     Active Substance: AMISULPRIDE
     Dosage: 8 G, SINGLE
     Route: 048
     Dates: start: 20150918, end: 20150918
  2. RAMIPRIL. [Suspect]
     Active Substance: RAMIPRIL
     Dosage: 300 MG, SINGLE
     Route: 048
     Dates: start: 20150918, end: 20150918
  3. AMLODIPINE BESILATE [Suspect]
     Active Substance: AMLODIPINE BESYLATE
     Dosage: 150 MG, SINGLE
     Route: 048
     Dates: start: 20150918, end: 20150918
  4. TERCIAN [Suspect]
     Active Substance: CYAMEMAZINE
     Dosage: UNK
     Route: 065
  5. MIRTAZAPINE. [Suspect]
     Active Substance: MIRTAZAPINE
     Dosage: 300 MG, SINGLE
     Route: 048
     Dates: start: 20150918, end: 20150918
  6. PROPRANOLOL [Suspect]
     Active Substance: PROPRANOLOL\PROPRANOLOL HYDROCHLORIDE
     Dosage: 1.36 G, SINGLE
     Route: 048
     Dates: start: 20150918, end: 20150918

REACTIONS (6)
  - Hypotension [Unknown]
  - Cardiogenic shock [Recovered/Resolved]
  - Miosis [Unknown]
  - Coma [Recovered/Resolved]
  - Altered state of consciousness [Recovered/Resolved]
  - Respiratory distress [Recovered/Resolved]

NARRATIVE: CASE EVENT DATE: 20150918
